FAERS Safety Report 11188170 (Version 1)
Quarter: 2015Q2

REPORT INFORMATION
  Report Type: Spontaneous
  Country: US (occurrence: US)
  Receive Date: 20150615
  Receipt Date: 20150615
  Transmission Date: 20150821
  Serious: No
  Sender: FDA-Public Use
  Company Number: US-JNJFOC-20150507402

PATIENT
  Age: 60 Year
  Sex: Female
  Weight: 58.97 kg

DRUGS (1)
  1. FENTANYL. [Suspect]
     Active Substance: FENTANYL
     Indication: NEURALGIA
     Route: 062

REACTIONS (1)
  - Drug ineffective [Unknown]
